FAERS Safety Report 4828206-8 (Version None)
Quarter: 2005Q4

REPORT INFORMATION
  Report Type: 
  Country: None (occurrence: None)
  Receive Date: 20051115
  Receipt Date: 20051108
  Transmission Date: 20060501
  Serious: Yes (Other)
  Sender: FDA-Public Use
  Company Number: ES-GLAXOSMITHKLINE-B0400157A

PATIENT
  Age: 33 Year
  Sex: Male

DRUGS (3)
  1. PAROXETINE HCL [Suspect]
     Indication: MAJOR DEPRESSION
     Dosage: 20MG SEE DOSAGE TEXT
     Route: 048
     Dates: end: 20050101
  2. COCAINE [Suspect]
  3. AMPHETAMINES [Suspect]

REACTIONS (4)
  - AGGRESSION [None]
  - HALLUCINATION [None]
  - PARANOIA [None]
  - SCHIZOPHRENIFORM DISORDER [None]
